FAERS Safety Report 6544345-8 (Version None)
Quarter: 2010Q1

REPORT INFORMATION
  Report Type: 
  Country: None (occurrence: None)
  Receive Date: 20100120
  Receipt Date: 20100120
  Transmission Date: 20100710
  Serious: Yes (Other)
  Sender: FDA-Public Use
  Company Number: None

PATIENT
  Sex: Male
  Weight: 99.7913 kg

DRUGS (1)
  1. ROLAIDS [Suspect]
     Indication: ABDOMINAL DISCOMFORT
     Dosage: CHEW 2-4 TABLETS HOURLY DENTAL
     Route: 004
     Dates: start: 20100115, end: 20100117

REACTIONS (5)
  - ABDOMINAL PAIN UPPER [None]
  - DIARRHOEA [None]
  - MALAISE [None]
  - PRODUCT QUALITY ISSUE [None]
  - VOMITING [None]
